FAERS Safety Report 20517575 (Version 1)
Quarter: 2022Q1

REPORT INFORMATION
  Report Type: Spontaneous
  Country: US (occurrence: None)
  Receive Date: 20220224
  Receipt Date: 20220224
  Transmission Date: 20220424
  Serious: No
  Sender: FDA-Public Use
  Company Number: None

PATIENT
  Age: 75 Year
  Sex: Male
  Weight: 90 kg

DRUGS (1)
  1. SOTROVIMAB [Suspect]
     Active Substance: SOTROVIMAB
     Indication: COVID-19
     Dosage: 500 MG ONCE IV
     Route: 042
     Dates: start: 20220115, end: 20220115

REACTIONS (2)
  - Dehydration [None]
  - Orthostatic hypotension [None]

NARRATIVE: CASE EVENT DATE: 20220123
